FAERS Safety Report 4645999-3 (Version None)
Quarter: 2005Q2

REPORT INFORMATION
  Report Type: 
  Country: None (occurrence: None)
  Receive Date: 20050427
  Receipt Date: 20050422
  Transmission Date: 20051028
  Serious: Yes (Other)
  Sender: FDA-Public Use
  Company Number: 200513447US

PATIENT
  Sex: Female
  Weight: 54.5 kg

DRUGS (6)
  1. LANTUS [Suspect]
     Indication: DIABETES MELLITUS NON-INSULIN-DEPENDENT
     Dosage: DOSE UNIT: UNITS
     Dates: start: 20050415
  2. OPTICLIK (INSULIN INJECTION PEN) [Suspect]
     Dates: start: 20050415
  3. ATENOLOL [Concomitant]
     Indication: HYPERTENSION
     Dosage: DOSE: UNKNOWN
  4. NORVASC [Concomitant]
     Indication: HYPERTENSION
     Dosage: DOSE: UNKNOWN
  5. FOSAMAX [Concomitant]
     Indication: OSTEOPOROSIS
     Dosage: DOSE: UNKNOWN
  6. METFORMIN HCL [Concomitant]
     Indication: DIABETES MELLITUS NON-INSULIN-DEPENDENT
     Dosage: DOSE: UNKNOWN

REACTIONS (2)
  - HYPERTENSION [None]
  - TACHYCARDIA [None]
